FAERS Safety Report 9636660 (Version 2)
Quarter: 2013Q4

REPORT INFORMATION
  Report Type: Spontaneous
  Country: JP (occurrence: JP)
  Receive Date: 20131021
  Receipt Date: 20131101
  Transmission Date: 20140711
  Serious: Yes (Hospitalization)
  Sender: FDA-Public Use
  Company Number: JP-ROCHE-1289156

PATIENT
  Age: 7 Decade
  Sex: Female

DRUGS (8)
  1. RIVOTRIL [Suspect]
     Indication: BIPOLAR DISORDER
     Route: 048
  2. LITHIUM CARBONATE [Suspect]
     Indication: BIPOLAR DISORDER
     Route: 065
  3. ESTAZOLAM [Suspect]
     Indication: BIPOLAR DISORDER
     Route: 065
  4. VALSARTAN [Concomitant]
  5. BERAPROST [Concomitant]
  6. WARFARIN [Concomitant]
  7. LEVOTHYROXINE [Concomitant]
  8. CODEINE [Concomitant]
     Indication: LUMBAR SPINAL STENOSIS
     Route: 048

REACTIONS (4)
  - Altered state of consciousness [Unknown]
  - Delirium [Unknown]
  - Fall [Unknown]
  - Subdural haematoma [Unknown]
